FAERS Safety Report 8486135-5 (Version None)
Quarter: 2012Q3

REPORT INFORMATION
  Report Type: 
  Country: None (occurrence: None)
  Receive Date: 20120703
  Receipt Date: 20120626
  Transmission Date: 20120928
  Serious: Yes (Disabling)
  Sender: FDA-Public Use
  Company Number: FR-BAXTER-2012BAX009630

PATIENT
  Sex: Female

DRUGS (15)
  1. CYCLOPHOSPHAMIDE [Suspect]
     Route: 042
     Dates: start: 20120510
  2. CYCLOPHOSPHAMIDE [Suspect]
     Route: 042
     Dates: start: 20120524
  3. DOXORUBICIN HCL [Suspect]
     Route: 042
     Dates: start: 20120524
  4. VINCRISTINE [Suspect]
     Route: 042
     Dates: start: 20120510
  5. VINCRISTINE [Suspect]
     Route: 042
     Dates: start: 20120524
  6. RITUXAN [Suspect]
     Dates: start: 20120524
  7. CYCLOPHOSPHAMIDE [Suspect]
     Indication: B-CELL LYMPHOMA
     Route: 042
     Dates: start: 20120426
  8. DOXORUBICIN HCL [Suspect]
     Route: 042
     Dates: start: 20120510
  9. VINCRISTINE [Suspect]
     Indication: B-CELL LYMPHOMA
     Route: 042
     Dates: start: 20120426
  10. RITUXAN [Suspect]
     Dates: start: 20120510
  11. PREDNISONE [Suspect]
     Indication: B-CELL LYMPHOMA
     Dates: start: 20120426
  12. RITUXAN [Suspect]
     Indication: B-CELL LYMPHOMA
     Dates: start: 20120426
  13. PREDNISONE [Suspect]
     Dates: start: 20120510
  14. DOXORUBICIN HCL [Suspect]
     Indication: B-CELL LYMPHOMA
     Route: 042
     Dates: start: 20120426
  15. PREDNISONE [Suspect]
     Dates: start: 20120524

REACTIONS (1)
  - PALMAR-PLANTAR ERYTHRODYSAESTHESIA SYNDROME [None]
